FAERS Safety Report 16416777 (Version 3)
Quarter: 2019Q3

REPORT INFORMATION
  Report Type: Report from Study
  Country: US (occurrence: US)
  Receive Date: 20190611
  Receipt Date: 20190808
  Transmission Date: 20191004
  Serious: Yes (Other)
  Sender: FDA-Public Use
  Company Number: US-UCBSA-2019023649

PATIENT
  Sex: Female

DRUGS (1)
  1. ROTIGOTINE [Suspect]
     Active Substance: ROTIGOTINE
     Indication: PARKINSON^S DISEASE
     Dosage: 4 MILLIGRAM

REACTIONS (4)
  - Diplopia [Unknown]
  - Vision blurred [Unknown]
  - Urinary incontinence [Unknown]
  - Headache [Unknown]

NARRATIVE: CASE EVENT DATE: 20180801
